FAERS Safety Report 11386726 (Version 1)
Quarter: 2015Q3

REPORT INFORMATION
  Report Type: Spontaneous
  Country: US (occurrence: None)
  Receive Date: 20150814
  Receipt Date: 20150814
  Transmission Date: 20151125
  Serious: Yes (Hospitalization)
  Sender: FDA-Public Use
  Company Number: None

PATIENT
  Age: 81 Year
  Sex: Male
  Weight: 93.2 kg

DRUGS (16)
  1. LIPITOR [Concomitant]
     Active Substance: ATORVASTATIN CALCIUM
  2. NTG [Concomitant]
     Active Substance: NITROGLYCERIN
  3. RISPERDAL [Concomitant]
     Active Substance: RISPERIDONE
  4. APAP [Concomitant]
     Active Substance: ACETAMINOPHEN
  5. BUTRANS [Suspect]
     Active Substance: BUPRENORPHINE
     Indication: PAIN
     Route: 062
  6. BYSTOLIC [Concomitant]
     Active Substance: NEBIVOLOL HYDROCHLORIDE
  7. BENADRYL [Concomitant]
     Active Substance: DIPHENHYDRAMINE HYDROCHLORIDE
  8. NAMENDA [Concomitant]
     Active Substance: MEMANTINE HYDROCHLORIDE
  9. MYBETRIQ [Concomitant]
  10. VITAMIN B12 [Concomitant]
     Active Substance: CYANOCOBALAMIN
  11. EXELON [Concomitant]
     Active Substance: RIVASTIGMINE TARTRATE
  12. ASA [Concomitant]
     Active Substance: ASPIRIN
  13. NEURONTIN [Concomitant]
     Active Substance: GABAPENTIN
  14. DIOVAN [Concomitant]
     Active Substance: VALSARTAN
  15. AMARYL [Concomitant]
     Active Substance: GLIMEPIRIDE
  16. FLMAX [Concomitant]

REACTIONS (4)
  - Mental status changes [None]
  - Cardiac failure congestive [None]
  - Confusional state [None]
  - Hallucination [None]

NARRATIVE: CASE EVENT DATE: 20150203
